FAERS Safety Report 4389200-7 (Version None)
Quarter: 2004Q3

REPORT INFORMATION
  Report Type: 
  Country: None (occurrence: None)
  Receive Date: 20040702
  Receipt Date: 20040628
  Transmission Date: 20050211
  Serious: Yes (Death, Other)
  Sender: FDA-Public Use
  Company Number: IT-BRISTOL-MYERS SQUIBB COMPANY-12626198

PATIENT
  Age: 63 Year
  Sex: Male

DRUGS (3)
  1. HYDROXYCARBAMIDE [Suspect]
     Indication: ESSENTIAL THROMBOCYTHAEMIA
     Dosage: 1.5-2.0 G/DAY X 15 DAYS/MO
     Dates: start: 19970101, end: 20000301
  2. BUSULFAN [Suspect]
     Indication: ESSENTIAL THROMBOCYTHAEMIA
     Dosage: DOSE:6-8 MG/DAY FOR 8-10 DAYS/MO
     Dates: start: 20000401, end: 20020401
  3. ASPIRIN [Concomitant]

REACTIONS (2)
  - LEUKAEMIA PLASMACYTIC [None]
  - PNEUMONIA [None]
